FAERS Safety Report 8383474 (Version 2)
Quarter: 2015Q1

REPORT INFORMATION
  Report Type: Report from Study
  Country: US (occurrence: US)
  Receive Date: 20120130
  Receipt Date: 20150312
  Transmission Date: 20150721
  Serious: Yes (Death, Hospitalization, Other)
  Sender: FDA-Public Use
  Company Number: US-ROCHE-1033373

PATIENT
  Age: 53 Year
  Sex: Female
  Weight: 70.82 kg

DRUGS (56)
  1. ZOFRAN [Concomitant]
     Active Substance: ONDANSETRON HYDROCHLORIDE
     Route: 042
  2. TAGAMET [Concomitant]
     Active Substance: CIMETIDINE
     Route: 042
  3. NEULASTA [Concomitant]
     Active Substance: PEGFILGRASTIM
     Route: 058
  4. MIRALAX [Concomitant]
     Active Substance: POLYETHYLENE GLYCOL 3350
  5. ATROPINE SULPHATE [Concomitant]
     Route: 042
  6. CAMPTOSAR [Concomitant]
     Active Substance: IRINOTECAN HYDROCHLORIDE
  7. ZYRTEC [Concomitant]
     Active Substance: CETIRIZINE HYDROCHLORIDE
  8. PERCOCET [Concomitant]
     Active Substance: ACETAMINOPHEN\OXYCODONE HYDROCHLORIDE
  9. LOMOTIL (UNITED STATES) [Concomitant]
  10. AVASTIN [Suspect]
     Active Substance: BEVACIZUMAB
     Indication: COLON CANCER
     Route: 042
     Dates: start: 20060503
  11. XELODA [Suspect]
     Active Substance: CAPECITABINE
     Indication: COLON CANCER
     Route: 065
  12. LEUCOVORIN [Concomitant]
     Active Substance: LEUCOVORIN
     Route: 042
  13. ALOXI [Concomitant]
     Active Substance: PALONOSETRON HYDROCHLORIDE
     Route: 042
  14. ATIVAN [Concomitant]
     Active Substance: LORAZEPAM
     Route: 042
  15. DEXAMETHASONE SODIUM PHOSPHATE. [Concomitant]
     Active Substance: DEXAMETHASONE SODIUM PHOSPHATE
     Route: 042
  16. SENNA [Concomitant]
     Active Substance: SENNA LEAF\SENNOSIDES\SENNOSIDES A AND B
     Route: 048
  17. XANAX [Concomitant]
     Active Substance: ALPRAZOLAM
     Route: 048
  18. 5-FLUOROURACIL [Concomitant]
     Active Substance: FLUOROURACIL
     Route: 065
  19. REMERON [Concomitant]
     Active Substance: MIRTAZAPINE
     Indication: DEPRESSION
     Route: 048
  20. LEVAQUIN [Concomitant]
     Active Substance: LEVOFLOXACIN
     Route: 065
  21. AUGMENTIN [Concomitant]
     Active Substance: AMOXICILLIN\CLAVULANATE POTASSIUM
     Route: 065
  22. FLEXERIL [Concomitant]
     Active Substance: CYCLOBENZAPRINE HYDROCHLORIDE
  23. OXYCODONE [Concomitant]
     Active Substance: OXYCODONE
  24. AVASTIN [Suspect]
     Active Substance: BEVACIZUMAB
     Route: 042
  25. AVASTIN [Suspect]
     Active Substance: BEVACIZUMAB
     Route: 042
  26. AVASTIN [Suspect]
     Active Substance: BEVACIZUMAB
     Route: 042
  27. CETUXIMAB [Concomitant]
     Active Substance: CETUXIMAB
     Route: 042
  28. PROTONIX (UNITED STATES) [Concomitant]
     Route: 065
  29. BENADRYL [Concomitant]
     Active Substance: DIPHENHYDRAMINE HYDROCHLORIDE
     Route: 042
  30. LOVENOX [Concomitant]
     Active Substance: ENOXAPARIN SODIUM
  31. ERBITUX [Concomitant]
     Active Substance: CETUXIMAB
  32. DEODORIZED TINCTURE OF OPIUM [Concomitant]
  33. COMPAZINE [Concomitant]
     Active Substance: PROCHLORPERAZINE MALEATE
  34. AVASTIN [Suspect]
     Active Substance: BEVACIZUMAB
     Route: 042
  35. MAGNESIUM SULFATE. [Concomitant]
     Active Substance: MAGNESIUM SULFATE
     Route: 065
  36. REGLAN [Concomitant]
     Active Substance: METOCLOPRAMIDE HYDROCHLORIDE
     Route: 042
  37. OXALIPLATIN. [Concomitant]
     Active Substance: OXALIPLATIN
     Route: 042
  38. FERRLECIT (UNITED STATES) [Concomitant]
     Route: 042
  39. NEUPOGEN [Concomitant]
     Active Substance: FILGRASTIM
     Route: 058
  40. VECTIBIX [Suspect]
     Active Substance: PANITUMUMAB
     Indication: COLORECTAL CANCER METASTATIC
     Route: 042
  41. TYLENOL [Concomitant]
     Active Substance: ACETAMINOPHEN
     Route: 065
  42. HYDROCHLOROTHIAZIDE. [Concomitant]
     Active Substance: HYDROCHLOROTHIAZIDE
     Route: 065
  43. CLINDAMYCIN [Concomitant]
     Active Substance: CLINDAMYCIN\CLINDAMYCIN PHOSPHATE
     Route: 065
  44. IBUPROFEN. [Concomitant]
     Active Substance: IBUPROFEN
  45. OXYCONTIN [Concomitant]
     Active Substance: OXYCODONE HYDROCHLORIDE
  46. HEPARIN [Concomitant]
     Active Substance: HEPARIN SODIUM
  47. PALONOSETRON [Concomitant]
     Active Substance: PALONOSETRON
     Route: 065
  48. IRINOTECAN [Concomitant]
     Active Substance: IRINOTECAN
     Route: 065
  49. KEFLEX [Suspect]
     Active Substance: CEPHALEXIN
     Indication: PRODUCT USED FOR UNKNOWN INDICATION
     Route: 065
  50. ARANESP [Concomitant]
     Active Substance: DARBEPOETIN ALFA
     Route: 058
  51. SANDOSTATIN [Concomitant]
     Active Substance: OCTREOTIDE ACETATE
     Route: 065
  52. ATARAX [Concomitant]
     Active Substance: HYDROXYZINE\HYDROXYZINE HYDROCHLORIDE
  53. COUMADIN [Concomitant]
     Active Substance: WARFARIN SODIUM
  54. EMEND [Concomitant]
     Active Substance: APREPITANT
     Route: 065
  55. LORTAB (UNITED STATES) [Concomitant]
     Route: 065
  56. VITAMIN K [Concomitant]
     Active Substance: PHYTONADIONE
     Route: 065

REACTIONS (60)
  - Death [Fatal]
  - Epistaxis [Unknown]
  - Cough [Unknown]
  - Hydroureter [Unknown]
  - Insomnia [Unknown]
  - Oedema peripheral [Unknown]
  - Thrombosis [Unknown]
  - Gastrointestinal haemorrhage [Unknown]
  - Coagulopathy [Unknown]
  - Hypertension [Unknown]
  - Swelling [Unknown]
  - Face oedema [Recovered/Resolved]
  - Ascites [Unknown]
  - Musculoskeletal pain [Unknown]
  - Abdominal pain [Unknown]
  - Thyroid neoplasm [Unknown]
  - Skin exfoliation [Unknown]
  - Diarrhoea [Recovered/Resolved]
  - Pancytopenia [Recovering/Resolving]
  - Gastrointestinal fistula [Unknown]
  - Lymphatic system neoplasm [Unknown]
  - Hypomagnesaemia [Unknown]
  - Colon cancer metastatic [Unknown]
  - Arthralgia [Unknown]
  - Neutropenia [Unknown]
  - Disease progression [Unknown]
  - Constipation [Unknown]
  - Myalgia [Unknown]
  - Palmar-plantar erythrodysaesthesia syndrome [Unknown]
  - Metastases to liver [Unknown]
  - Lymphoma [Unknown]
  - Rash [Unknown]
  - Chills [Unknown]
  - Neuropathy peripheral [Unknown]
  - Back pain [Unknown]
  - Stomatitis [Unknown]
  - Anaemia [Unknown]
  - Pulmonary mass [Unknown]
  - Aortic calcification [Unknown]
  - Rash maculo-papular [Recovering/Resolving]
  - Sedation [Unknown]
  - Haemorrhoidal haemorrhage [Unknown]
  - Vomiting [Unknown]
  - Dysfunctional uterine bleeding [Unknown]
  - Fatigue [Recovering/Resolving]
  - Dry skin [Unknown]
  - Dyspnoea [Unknown]
  - Oropharyngeal pain [Unknown]
  - Dizziness [Unknown]
  - Blood urine present [Unknown]
  - Dehydration [Unknown]
  - Abdominal abscess [Unknown]
  - Thrombocytopenia [Recovered/Resolved]
  - Depression [Recovered/Resolved]
  - Neck pain [Recovered/Resolved]
  - Flank pain [Unknown]
  - Pyrexia [Unknown]
  - Hydronephrosis [Unknown]
  - Hypokalaemia [Unknown]
  - Asthenia [Unknown]

NARRATIVE: CASE EVENT DATE: 20090322
